FAERS Safety Report 13655792 (Version 1)
Quarter: 2017Q2

REPORT INFORMATION
  Report Type: Spontaneous
  Country: US (occurrence: US)
  Receive Date: 20170615
  Receipt Date: 20170615
  Transmission Date: 20170830
  Serious: No
  Sender: FDA-Public Use
  Company Number: US-GLAXOSMITHKLINE-US2017088449

PATIENT
  Age: 77 Year
  Sex: Female

DRUGS (1)
  1. FLONASE SENSIMIST ALLERGY RELIEF [Suspect]
     Active Substance: FLUTICASONE FUROATE
     Indication: HYPERSENSITIVITY
     Dosage: UNK,  USED AN EXTRA DOSE OF IT. WAS USING IT TWICE A DAY AT LEAST
     Dates: start: 201705, end: 20170606

REACTIONS (3)
  - Inappropriate schedule of drug administration [Unknown]
  - Extra dose administered [Unknown]
  - Drug ineffective [Unknown]
